FAERS Safety Report 7702919-2 (Version None)
Quarter: 2011Q3

REPORT INFORMATION
  Report Type: 
  Country: None (occurrence: None)
  Receive Date: 20110823
  Receipt Date: 20110816
  Transmission Date: 20111222
  Serious: Yes (Other)
  Sender: FDA-Public Use
  Company Number: DE-JNJFOC-20110707079

PATIENT
  Age: 42 Year
  Sex: Female

DRUGS (3)
  1. MINOXIDIL [Suspect]
     Indication: ALOPECIA
     Dosage: THREE BOTTLES COMPLETELY
     Route: 061
  2. MINOXIDIL [Suspect]
     Route: 061
  3. LEVOTHYROXINE SODIUM [Concomitant]
     Indication: THYROID DISORDER

REACTIONS (4)
  - CONTRAINDICATION TO MEDICAL TREATMENT [None]
  - ABORTION SPONTANEOUS [None]
  - WRONG DRUG ADMINISTERED [None]
  - MATERNAL EXPOSURE DURING PREGNANCY [None]
